FAERS Safety Report 13697649 (Version 1)
Quarter: 2017Q2

REPORT INFORMATION
  Report Type: Report from Study
  Country: SE (occurrence: SE)
  Receive Date: 20170628
  Receipt Date: 20170628
  Transmission Date: 20170830
  Serious: Yes (Hospitalization)
  Sender: FDA-Public Use
  Company Number: SE-ASTELLAS-2017US024623

PATIENT
  Age: 68 Year
  Sex: Male

DRUGS (10)
  1. OMEPRAZOL                          /00661201/ [Concomitant]
     Active Substance: OMEPRAZOLE
     Indication: DYSPEPSIA
     Dosage: 20 MG, TOTAL DAILY DOSE
     Route: 048
     Dates: start: 20160608
  2. BETAPRED [Concomitant]
     Active Substance: BETAMETHASONE SODIUM PHOSPHATE
     Indication: INFUSION RELATED REACTION
     Dosage: 12 MG, TOTAL DAILY DOSE AS NEEDED
     Route: 048
     Dates: start: 20160620
  3. BLINDED ENZALUTAMIDE [Suspect]
     Active Substance: ENZALUTAMIDE
     Indication: PROSTATE CANCER
     Dosage: UNK, ONCE DAILY
     Route: 048
     Dates: start: 20160719, end: 20170620
  4. PROPAVAN [Concomitant]
     Active Substance: PROPIOMAZINE
     Indication: INSOMNIA
     Dosage: 25 MG, TOTAL DAILY DOSE
     Route: 048
     Dates: start: 20110202
  5. ENZALUTAMIDE [Suspect]
     Active Substance: ENZALUTAMIDE
     Indication: PROSTATE CANCER
     Route: 048
     Dates: start: 20151219, end: 20160718
  6. PREDNISOLONE. [Suspect]
     Active Substance: PREDNISOLONE
     Indication: PROSTATE CANCER
     Route: 048
     Dates: start: 20160721, end: 20170309
  7. ANDROCUR [Concomitant]
     Active Substance: CYPROTERONE ACETATE
     Indication: HOT FLUSH
     Dosage: 50 MG, TOTAL DAILY DOSE
     Route: 048
     Dates: start: 20101025
  8. SYMBICORT [Concomitant]
     Active Substance: BUDESONIDE\FORMOTEROL FUMARATE DIHYDRATE
     Indication: ASTHMA
     Dosage: 4 PUFFS, TOTAL DAILY DOSE
     Route: 055
     Dates: start: 20160407
  9. METOCLOPRAMIDE. [Concomitant]
     Active Substance: METOCLOPRAMIDE
     Indication: NAUSEA
     Dosage: 30 MG, TOTAL DAILY DOSE AS NEEDED
     Route: 048
     Dates: start: 20160708
  10. DOCETAXEL. [Suspect]
     Active Substance: DOCETAXEL
     Indication: PROSTATE CANCER
     Dosage: 75 MG/M2, EVERY 3RD WEEK
     Route: 042
     Dates: start: 20160721, end: 20170309

REACTIONS (1)
  - Ileus [Not Recovered/Not Resolved]

NARRATIVE: CASE EVENT DATE: 20170620
